FAERS Safety Report 10055286 (Version 1)
Quarter: 2014Q2

REPORT INFORMATION
  Report Type: Spontaneous
  Country: US (occurrence: US)
  Receive Date: 20140403
  Receipt Date: 20140403
  Transmission Date: 20141212
  Serious: No
  Sender: FDA-Public Use
  Company Number: US-009507513-1403USA008071

PATIENT
  Sex: Female

DRUGS (1)
  1. PEGINTRON [Suspect]
     Dosage: UNK
     Dates: start: 20021011, end: 20021205

REACTIONS (6)
  - Hepatic cirrhosis [Recovering/Resolving]
  - Oral candidiasis [Recovering/Resolving]
  - Cold urticaria [Recovering/Resolving]
  - Fatigue [Recovering/Resolving]
  - Neuropathy peripheral [Recovering/Resolving]
  - Anaemia [Recovering/Resolving]
